FAERS Safety Report 10643946 (Version 1)
Quarter: 2014Q4

REPORT INFORMATION
  Report Type: Spontaneous
  Country: US (occurrence: US)
  Receive Date: 20141210
  Receipt Date: 20141210
  Transmission Date: 20150529
  Serious: Yes (Hospitalization)
  Sender: FDA-Public Use
  Company Number: US-PFIZER INC-2014333611

PATIENT
  Age: 38 Year
  Sex: Male
  Weight: 68.27 kg

DRUGS (5)
  1. MOTRIN [Concomitant]
     Active Substance: IBUPROFEN
     Dosage: 800 MG, 3X/DAY (AS NEEDED)
     Route: 048
  2. PRILOSEC [Concomitant]
     Active Substance: OMEPRAZOLE MAGNESIUM
     Dosage: 40 MG, 1X/DAY
     Route: 048
  3. ALDACTONE [Suspect]
     Active Substance: SPIRONOLACTONE
     Dosage: 25 MG, 1X/DAY
     Route: 048
     Dates: start: 20141022
  4. VICOPROFEN [Concomitant]
     Active Substance: HYDROCODONE BITARTRATE\IBUPROFEN
     Dosage: UNK, EVERY 4 HRS (HYDROCODONE BITARTRATE 7.5 MG, IBUPROFEN 200 MG; AS NEEDED)
     Route: 048
  5. LASIX [Concomitant]
     Active Substance: FUROSEMIDE
     Dosage: 20 MG, 1X/DAY (AS NEEDED)
     Route: 048

REACTIONS (4)
  - Oedema peripheral [Recovered/Resolved]
  - Dry skin [Unknown]
  - Cellulitis [Unknown]
  - Night sweats [Unknown]

NARRATIVE: CASE EVENT DATE: 201411
